FAERS Safety Report 5064641-3 (Version None)
Quarter: 2006Q3

REPORT INFORMATION
  Report Type: 
  Country: None (occurrence: None)
  Receive Date: 20060728
  Receipt Date: 20060719
  Transmission Date: 20061208
  Serious: Yes (Hospitalization, Other)
  Sender: FDA-Public Use
  Company Number: PHBS2006BR10995

PATIENT
  Age: 90 Year
  Sex: Male
  Weight: 100 kg

DRUGS (5)
  1. STALEVO 100 [Suspect]
     Indication: PARKINSON'S DISEASE
     Dosage: 200 MG, BID
     Route: 048
     Dates: start: 20050101
  2. NIAR [Concomitant]
     Indication: PARKINSON'S DISEASE
     Dosage: UNK, BID
     Route: 048
  3. ENALAPRIL MALEATE [Concomitant]
     Indication: HYPERTENSION
     Route: 065
  4. CAPTOPRIL [Concomitant]
     Indication: HYPERTENSION
     Dosage: UNK, QD
     Route: 048
  5. CILOSTAZOL [Concomitant]
     Route: 048

REACTIONS (8)
  - AGITATION [None]
  - ANAEMIA [None]
  - ANOREXIA [None]
  - ASPIRATION [None]
  - ASTHENIA [None]
  - LARYNGOSPASM [None]
  - PNEUMONIA ASPIRATION [None]
  - SLEEP DISORDER [None]
